FAERS Safety Report 25044141 (Version 1)
Quarter: 2025Q1

REPORT INFORMATION
  Report Type: Spontaneous
  Country: CH (occurrence: CH)
  Receive Date: 20250306
  Receipt Date: 20250306
  Transmission Date: 20250409
  Serious: Yes (Other)
  Sender: GLAXOSMITHKLINE
  Company Number: CH-GSKCCFEMEA-Case-02251241_AE-94680

PATIENT

DRUGS (1)
  1. LAMICTAL [Suspect]
     Active Substance: LAMOTRIGINE
     Indication: Product used for unknown indication

REACTIONS (4)
  - Seizure [Unknown]
  - Foreign body in throat [Unknown]
  - Muscle spasms [Unknown]
  - Product complaint [Unknown]
